FAERS Safety Report 5824098-9 (Version None)
Quarter: 2008Q3

REPORT INFORMATION
  Report Type: 
  Country: None (occurrence: None)
  Receive Date: 20080722
  Receipt Date: 20080707
  Transmission Date: 20090109
  Serious: Yes (Hospitalization)
  Sender: FDA-Public Use
  Company Number: 20080196 /

PATIENT
  Age: 71 Year
  Sex: Male

DRUGS (8)
  1. VENOFER [Suspect]
     Indication: ANAEMIA
     Dosage: 200 MG Q 3 WKS
  2. INJECTAFER (FERRIC CARBOXYMALTOSE) [Suspect]
     Indication: ANAEMIA
     Dosage: 500 MG WEEKLY
     Dates: start: 20080328, end: 20080401
  3. INDERAL [Concomitant]
  4. NEXIUM [Concomitant]
  5. TORSEMIDE [Concomitant]
  6. ACIDUM FOLICUM [Concomitant]
  7. KONAKION (PHYTOMENANDIONE) [Concomitant]
  8. ARANESP [Concomitant]

REACTIONS (6)
  - ABDOMINAL PAIN [None]
  - CHOLESTATIC LIVER INJURY [None]
  - DIARRHOEA [None]
  - HAEMORRHAGE [None]
  - LIVER FUNCTION TEST ABNORMAL [None]
  - SERUM FERRITIN DECREASED [None]
